FAERS Safety Report 19707806 (Version 4)
Quarter: 2021Q3

REPORT INFORMATION
  Report Type: Report from Study
  Country: US (occurrence: US)
  Receive Date: 20210817
  Receipt Date: 20210924
  Transmission Date: 20211014
  Serious: No
  Sender: FDA-Public Use
  Company Number: NVSC2021US185242

PATIENT
  Sex: Female

DRUGS (1)
  1. KISQALI [Suspect]
     Active Substance: RIBOCICLIB
     Indication: BREAST CANCER
     Dosage: 600 MG, QD
     Route: 048
     Dates: start: 202107

REACTIONS (8)
  - Rash [Unknown]
  - Nausea [Unknown]
  - Malaise [Unknown]
  - Bone pain [Recovering/Resolving]
  - Tumour marker increased [Unknown]
  - White blood cell count decreased [Unknown]
  - Pruritus [Unknown]
  - Fatigue [Unknown]
